FAERS Safety Report 15004755 (Version 1)
Quarter: 2018Q2

REPORT INFORMATION
  Report Type: Spontaneous
  Country: FR (occurrence: FR)
  Receive Date: 20180613
  Receipt Date: 20180613
  Transmission Date: 20180711
  Serious: Yes (Other)
  Sender: FDA-Public Use
  Company Number: FR-AUROBINDO-AUR-APL-2018-030146

PATIENT
  Age: 76 Year
  Sex: Female
  Weight: 66 kg

DRUGS (4)
  1. PIPERACILLINE / TAZOBACTAM MYLAN [Suspect]
     Active Substance: PIPERACILLIN SODIUM\TAZOBACTAM SODIUM
     Indication: DEVICE RELATED INFECTION
     Dosage: 16 GRAM, DAILY
     Route: 042
     Dates: start: 20180420, end: 20180427
  2. VANCOMYCINE SANDOZ [Concomitant]
     Active Substance: VANCOMYCIN
     Indication: DEVICE RELATED INFECTION
     Dosage: 2.5 GRAM, EVERY 24 HOUR
     Route: 042
     Dates: start: 20180507, end: 20180515
  3. LINEZOLIDE ARROW 600 MG FILM COATED TABLET [Suspect]
     Active Substance: LINEZOLID
     Indication: DEVICE RELATED INFECTION
     Dosage: 1200 MILLIGRAM, DAILY
     Route: 048
     Dates: start: 20180420, end: 20180430
  4. AZACTAM [Suspect]
     Active Substance: AZTREONAM
     Indication: DEVICE RELATED INFECTION
     Dosage: 6 GRAM, DAILY
     Route: 042
     Dates: start: 20180427, end: 20180515

REACTIONS (3)
  - Pyrexia [Recovered/Resolved]
  - Hepatocellular injury [Recovering/Resolving]
  - Cholestasis [Recovering/Resolving]

NARRATIVE: CASE EVENT DATE: 201804
